FAERS Safety Report 4960701-3 (Version None)
Quarter: 2006Q2

REPORT INFORMATION
  Report Type: 
  Country: None (occurrence: None)
  Receive Date: 20060403
  Receipt Date: 20051215
  Transmission Date: 20061013
  Serious: Yes (Hospitalization, Disabling)
  Sender: FDA-Public Use
  Company Number: US-MERCK-0512USA02567

PATIENT
  Age: 51 Year
  Sex: Male
  Weight: 116 kg

DRUGS (9)
  1. VIOXX [Suspect]
     Indication: ARTHRITIS
     Route: 048
     Dates: start: 20000228, end: 20040806
  2. VIOXX [Suspect]
     Route: 048
     Dates: start: 20000228, end: 20040806
  3. DILAUDID [Concomitant]
     Indication: PAIN
     Route: 065
     Dates: start: 19970501, end: 20050101
  4. OXYCODONE [Concomitant]
     Indication: PAIN
     Route: 065
     Dates: start: 20000701, end: 20050101
  5. METHADONE HYDROCHLORIDE [Concomitant]
     Indication: PAIN
     Route: 065
     Dates: start: 19970501, end: 20050101
  6. PERCODAN [Concomitant]
     Route: 065
  7. SKELAXIN [Concomitant]
     Indication: PAIN
     Route: 065
     Dates: start: 20000501, end: 20040801
  8. DIOVAN [Concomitant]
     Indication: HYPERTENSION
     Route: 065
     Dates: start: 20040521, end: 20040601
  9. MORPHINE [Concomitant]
     Indication: PAIN
     Route: 065
     Dates: start: 20000809, end: 20040511

REACTIONS (2)
  - ARTHROPATHY [None]
  - CEREBROVASCULAR ACCIDENT [None]
